FAERS Safety Report 20149497 (Version 1)
Quarter: 2021Q4

REPORT INFORMATION
  Report Type: Spontaneous
  Country: DE (occurrence: DE)
  Receive Date: 20211205
  Receipt Date: 20211205
  Transmission Date: 20220303
  Serious: Yes (Death, Other)
  Sender: FDA-Public Use
  Company Number: DE-009507513-2106DEU006335

PATIENT
  Age: 69 Year
  Sex: Female

DRUGS (5)
  1. PEMBROLIZUMAB [Suspect]
     Active Substance: PEMBROLIZUMAB
     Indication: Lung neoplasm malignant
     Dosage: 200 MILLIGRAM (FIXED DOSE)
     Route: 042
     Dates: start: 202007, end: 202009
  2. PEMBROLIZUMAB [Suspect]
     Active Substance: PEMBROLIZUMAB
     Dosage: UNK
     Dates: start: 202010, end: 202011
  3. CARBOPLATIN [Suspect]
     Active Substance: CARBOPLATIN
     Indication: Lung neoplasm malignant
     Dosage: CALVERT AUC (AREA UNDER THE FREE CARBOPLATIN PLASMA CONCENTRATION VERSUS TIME CURVE)5, I.V. DAY 1
     Route: 042
     Dates: start: 202007, end: 202009
  4. PEMETREXED [Suspect]
     Active Substance: PEMETREXED
     Indication: Lung neoplasm malignant
     Dosage: 500 MG / M2 I.V,  DAY 1
     Route: 042
     Dates: start: 202007, end: 202009
  5. PEMETREXED [Suspect]
     Active Substance: PEMETREXED
     Dosage: UNK
     Dates: start: 202010, end: 202011

REACTIONS (2)
  - Death [Fatal]
  - Malignant neoplasm progression [Recovering/Resolving]

NARRATIVE: CASE EVENT DATE: 20201201
